FAERS Safety Report 8916075 (Version 1)
Quarter: 2012Q4

REPORT INFORMATION
  Report Type: 
  Country: JP (occurrence: JP)
  Receive Date: 20121119
  Receipt Date: 20121119
  Transmission Date: 20130627
  Serious: Yes (Hospitalization)
  Sender: FDA-Public Use
  Company Number: JP-BAYER-2012-120767

PATIENT
  Age: 60 Year
  Sex: Male

DRUGS (1)
  1. MAGNEVIST [Suspect]
     Indication: MRI
     Dosage: 15 ml, ONCE
     Route: 042
     Dates: start: 20121107, end: 20121107

REACTIONS (4)
  - Pruritus [Recovered/Resolved]
  - Erythema [Recovered/Resolved]
  - Hypoaesthesia [Recovered/Resolved]
  - Headache [Recovered/Resolved]
